FAERS Safety Report 6570286-6 (Version None)
Quarter: 2010Q1

REPORT INFORMATION
  Report Type: 
  Country: None (occurrence: None)
  Receive Date: 20100204
  Receipt Date: 20100126
  Transmission Date: 20100710
  Serious: Yes (Other)
  Sender: FDA-Public Use
  Company Number: US-PFIZER INC-2010011729

PATIENT
  Sex: Male

DRUGS (2)
  1. LYRICA [Suspect]
     Dates: start: 20100101
  2. VICODIN [Suspect]

REACTIONS (2)
  - CONVULSION [None]
  - SOMNOLENCE [None]
